FAERS Safety Report 16756159 (Version 1)
Quarter: 2019Q3

REPORT INFORMATION
  Report Type: Spontaneous
  Country: CA (occurrence: CA)
  Receive Date: 20190829
  Receipt Date: 20190829
  Transmission Date: 20191005
  Serious: Yes (Life-Threatening, Hospitalization, Other)
  Sender: FDA-Public Use
  Company Number: CA-TEVA-2019-CA-1099323

PATIENT
  Age: 19 Year
  Sex: Male
  Weight: 72 kg

DRUGS (5)
  1. MINOCYCLINE [Suspect]
     Active Substance: MINOCYCLINE HYDROCHLORIDE
     Indication: SKIN DISORDER
     Dosage: 200 MILLIGRAM DAILY;
     Route: 048
  2. BLEXTEN [Concomitant]
     Active Substance: BILASTINE
     Indication: PRODUCT USED FOR UNKNOWN INDICATION
  3. CLINDA-T [Suspect]
     Active Substance: CLINDAMYCIN PHOSPHATE
     Indication: SKIN DISORDER
     Dosage: SOLUTION TOPICAL
     Route: 061
  4. PREDNISONE. [Concomitant]
     Active Substance: PREDNISONE
     Indication: PRODUCT USED FOR UNKNOWN INDICATION
  5. DIPHENHYDRAMINE. [Concomitant]
     Active Substance: DIPHENHYDRAMINE
     Indication: PRODUCT USED FOR UNKNOWN INDICATION

REACTIONS (12)
  - Rash generalised [Recovering/Resolving]
  - Tachycardia [Recovering/Resolving]
  - Hepatocellular injury [Recovering/Resolving]
  - Rhabdomyolysis [Recovering/Resolving]
  - Oedema peripheral [Recovering/Resolving]
  - Palpitations [Recovering/Resolving]
  - Pyrexia [Recovering/Resolving]
  - Bed bug infestation [Recovering/Resolving]
  - Drug reaction with eosinophilia and systemic symptoms [Recovering/Resolving]
  - Headache [Recovering/Resolving]
  - General physical health deterioration [Recovering/Resolving]
  - Lymphadenopathy [Recovering/Resolving]
